FAERS Safety Report 16941589 (Version 2)
Quarter: 2019Q4

REPORT INFORMATION
  Report Type: Spontaneous
  Country: US (occurrence: US)
  Receive Date: 20191021
  Receipt Date: 20191128
  Transmission Date: 20200122
  Serious: Yes (Other)
  Sender: FDA-Public Use
  Company Number: US-GLAXOSMITHKLINE-US2019188968

PATIENT
  Sex: Female
  Weight: 95.24 kg

DRUGS (1)
  1. BENLYSTA [Suspect]
     Active Substance: BELIMUMAB
     Indication: SYSTEMIC LUPUS ERYTHEMATOSUS
     Dosage: UNK, WE
     Route: 058

REACTIONS (4)
  - Endodontic procedure [Unknown]
  - Tooth abscess [Unknown]
  - Post procedural infection [Unknown]
  - Swelling face [Unknown]
